FAERS Safety Report 24207871 (Version 1)
Quarter: 2024Q3

REPORT INFORMATION
  Report Type: Spontaneous
  Country: US (occurrence: US)
  Receive Date: 20240814
  Receipt Date: 20240814
  Transmission Date: 20241016
  Serious: No
  Sender: APOTEX
  Company Number: US-APOTEX-2024AP009140

PATIENT
  Sex: Female

DRUGS (1)
  1. ATORVASTATIN CALCIUM [Suspect]
     Active Substance: ATORVASTATIN CALCIUM
     Indication: Product used for unknown indication
     Dosage: 10 MILLIGRAM
     Route: 065
     Dates: start: 202406, end: 202407

REACTIONS (4)
  - Blister [Not Recovered/Not Resolved]
  - Peripheral swelling [Unknown]
  - Feeling abnormal [Unknown]
  - Joint swelling [Unknown]

NARRATIVE: CASE EVENT DATE: 20240701
